FAERS Safety Report 5309201-1 (Version None)
Quarter: 2007Q2

REPORT INFORMATION
  Report Type: 
  Country: None (occurrence: None)
  Receive Date: 20070423
  Receipt Date: 20070410
  Transmission Date: 20071010
  Serious: Yes (Hospitalization)
  Sender: FDA-Public Use
  Company Number: DSU-2007-00076

PATIENT
  Sex: Male

DRUGS (2)
  1. BENICAR [Suspect]
     Indication: DRUG USE FOR UNKNOWN INDICATION
     Dosage: 40 MG (40 MG, ONCE A DAY), PER ORAL; PER ORAL
     Route: 048
     Dates: start: 20070101, end: 20070101
  2. BENICAR [Suspect]
     Indication: DRUG USE FOR UNKNOWN INDICATION
     Dosage: 40 MG (40 MG, ONCE A DAY), PER ORAL; PER ORAL
     Route: 048
     Dates: end: 20070101

REACTIONS (3)
  - HYPOTENSION [None]
  - RENAL FAILURE [None]
  - VOMITING [None]
